FAERS Safety Report 17599709 (Version 1)
Quarter: 2020Q1

REPORT INFORMATION
  Report Type: Spontaneous
  Country: US (occurrence: US)
  Receive Date: 20200330
  Receipt Date: 20200330
  Transmission Date: 20200409
  Serious: No
  Sender: FDA-Public Use
  Company Number: US-SA-2020SA076501

PATIENT
  Age: 47 Year
  Sex: Female

DRUGS (4)
  1. BUTRANS [Concomitant]
     Active Substance: BUPRENORPHINE
     Dosage: 20 UG, QH
     Route: 065
  2. LISINOPRIL. [Concomitant]
     Active Substance: LISINOPRIL
     Dosage: 20 MG
     Route: 065
  3. BUPRENORPHINE [BUPRENORPHINE HYDROCHLORIDE] [Concomitant]
     Dosage: 20 UG, QH
     Route: 065
  4. AUBAGIO [Suspect]
     Active Substance: TERIFLUNOMIDE
     Dosage: 1 DF, QD
     Route: 048

REACTIONS (1)
  - Surgery [Unknown]
